FAERS Safety Report 8510516-4 (Version None)
Quarter: 2012Q3

REPORT INFORMATION
  Report Type: 
  Country: None (occurrence: None)
  Receive Date: 20120716
  Receipt Date: 20120626
  Transmission Date: 20120928
  Serious: Yes (Death)
  Sender: FDA-Public Use
  Company Number: US-009507513-2012SP019527

PATIENT

DRUGS (1)
  1. PEG-INTRON [Suspect]

REACTIONS (1)
  - INJURY ASSOCIATED WITH DEVICE [None]
